FAERS Safety Report 7761468-6 (Version None)
Quarter: 2011Q3

REPORT INFORMATION
  Report Type: 
  Country: None (occurrence: None)
  Receive Date: 20110920
  Receipt Date: 20110912
  Transmission Date: 20111222
  Serious: Yes (Hospitalization, Other)
  Sender: FDA-Public Use
  Company Number: FR-B.I. PHARMACEUTICALS,INC./RIDGEFIELD-2011-FF-00559FF

PATIENT
  Sex: Male
  Weight: 83 kg

DRUGS (3)
  1. VOLTAREN [Concomitant]
     Dosage: 150 MG
     Dates: start: 20110319
  2. PRADAXA [Suspect]
     Indication: HIP ARTHROPLASTY
     Dosage: 220 MG
     Route: 048
     Dates: start: 20110319, end: 20110423
  3. BISOPROLOL FUMARATE AND HYDROCHLOROTHIAZIDE [Concomitant]
     Route: 048

REACTIONS (2)
  - METASTASES TO LIVER [None]
  - OESOPHAGEAL CARCINOMA [None]
